FAERS Safety Report 4388074-8 (Version None)
Quarter: 2004Q2

REPORT INFORMATION
  Report Type: 
  Country: None (occurrence: None)
  Receive Date: 20040629
  Receipt Date: 20040629
  Transmission Date: 20050107
  Serious: Yes (Hospitalization)
  Sender: FDA-Public Use
  Company Number: None

PATIENT
  Sex: Male

DRUGS (2)
  1. FLUPHENAZINE [Suspect]
     Dosage: 2.5MG BID ORAL
     Route: 048
  2. OLANZAPINE [Suspect]
     Dosage: 10 MG BID ORAL
     Route: 048

REACTIONS (1)
  - BLOOD CREATINE PHOSPHOKINASE INCREASED [None]
